FAERS Safety Report 7621970 (Version 2)
Quarter: 2013Q4

REPORT INFORMATION
  Report Type: Spontaneous
  Country: US (occurrence: US)
  Receive Date: 20101008
  Receipt Date: 20131113
  Transmission Date: 20140711
  Serious: Yes (Hospitalization, Other)
  Sender: FDA-Public Use
  Company Number: US-ROCHE-706907

PATIENT
  Age: 15 Year
  Sex: Male
  Weight: 79.4 kg

DRUGS (1)
  1. ACCUTANE [Suspect]
     Indication: ACNE
     Route: 065
     Dates: start: 19980519, end: 199812

REACTIONS (9)
  - Colitis ulcerative [Unknown]
  - Inflammatory bowel disease [Unknown]
  - Cholangitis sclerosing [Unknown]
  - Cholangiocarcinoma [Unknown]
  - Dry skin [Unknown]
  - Lip dry [Unknown]
  - Dry eye [Unknown]
  - Rash [Recovering/Resolving]
  - Blood cholesterol increased [Unknown]
